FAERS Safety Report 6734209-9 (Version None)
Quarter: 2010Q2

REPORT INFORMATION
  Report Type: 
  Country: None (occurrence: None)
  Receive Date: 20100520
  Receipt Date: 20100511
  Transmission Date: 20101027
  Serious: Yes (Hospitalization)
  Sender: FDA-Public Use
  Company Number: US-BAXTER-2010BH011974

PATIENT
  Sex: Male

DRUGS (3)
  1. DIANEAL [Suspect]
     Indication: PERITONEAL DIALYSIS
     Route: 033
     Dates: end: 20100401
  2. DIANEAL [Suspect]
     Route: 033
     Dates: start: 20100510
  3. LISINOPRIL [Concomitant]
     Indication: HYPERTENSION
     Route: 065

REACTIONS (2)
  - HERNIA [None]
  - PROCEDURAL COMPLICATION [None]
